FAERS Safety Report 14467224 (Version 6)
Quarter: 2018Q2

REPORT INFORMATION
  Report Type: Report from Study
  Country: US (occurrence: US)
  Receive Date: 20180131
  Receipt Date: 20180407
  Transmission Date: 20180711
  Serious: Yes (Hospitalization, Disabling, Other)
  Sender: FDA-Public Use
  Company Number: PHEH2018US003121

PATIENT
  Age: 55 Year
  Sex: Female

DRUGS (4)
  1. NORTRIPTYLINE [Concomitant]
     Active Substance: NORTRIPTYLINE
     Indication: MULTIPLE SCLEROSIS
     Dosage: 10 MG, QHS
     Route: 048
     Dates: start: 2017
  2. CLONAZEPAM. [Concomitant]
     Active Substance: CLONAZEPAM
     Indication: PRODUCT USED FOR UNKNOWN INDICATION
     Dosage: 1 MG, QHS
     Route: 048
  3. GILENYA [Suspect]
     Active Substance: FINGOLIMOD HYDROCHLORIDE
     Indication: MULTIPLE SCLEROSIS
     Dosage: 0.5 MG, QD
     Route: 048
     Dates: start: 2012
  4. VITAMIN D [Suspect]
     Active Substance: CHOLECALCIFEROL
     Indication: MULTIPLE SCLEROSIS
     Dosage: 5000 U, QD
     Route: 048

REACTIONS (10)
  - Fall [Recovering/Resolving]
  - Fibula fracture [Recovering/Resolving]
  - Muscular weakness [Unknown]
  - Staphylococcal infection [Not Recovered/Not Resolved]
  - Joint instability [Recovering/Resolving]
  - Hypoaesthesia [Unknown]
  - Concomitant disease aggravated [Unknown]
  - Tibia fracture [Recovering/Resolving]
  - Vulvovaginal mycotic infection [Not Recovered/Not Resolved]
  - Escherichia urinary tract infection [Recovered/Resolved]

NARRATIVE: CASE EVENT DATE: 201801
